FAERS Safety Report 15365402 (Version 1)
Quarter: 2018Q3

REPORT INFORMATION
  Report Type: Spontaneous
  Country: US (occurrence: US)
  Receive Date: 20180831
  Receipt Date: 20180831
  Transmission Date: 20181010
  Serious: No
  Sender: FDA-Public Use
  Company Number: None

PATIENT
  Age: 62 Year
  Sex: Male
  Weight: 97.65 kg

DRUGS (2)
  1. OCEAN SALINE NASAL SPRAY [Suspect]
     Active Substance: SODIUM CHLORIDE
     Indication: SINUS HEADACHE
     Dosage: ?          QUANTITY:25 SPRAY(S);?
     Route: 055
     Dates: start: 20080801, end: 20180831
  2. ARM AND HAMMER NASAL [Concomitant]

REACTIONS (4)
  - Sinusitis [None]
  - Nasal discharge discolouration [None]
  - Epistaxis [None]
  - Ear pain [None]

NARRATIVE: CASE EVENT DATE: 20180601
